FAERS Safety Report 9704628 (Version 1)
Quarter: 2013Q4

REPORT INFORMATION
  Report Type: Spontaneous
  Country: US (occurrence: None)
  Receive Date: 20131121
  Receipt Date: 20131121
  Transmission Date: 20140711
  Serious: No
  Sender: FDA-Public Use
  Company Number: None

PATIENT
  Sex: Female

DRUGS (1)
  1. ETHACRYNIC ACID (EDECRIN) [Suspect]
     Indication: OEDEMA
     Dates: start: 20120220, end: 20120320

REACTIONS (2)
  - Drug-induced liver injury [None]
  - Hepatomegaly [None]
